FAERS Safety Report 11874550 (Version 2)
Quarter: 2016Q1

REPORT INFORMATION
  Report Type: Spontaneous
  Country: JP (occurrence: JP)
  Receive Date: 20151229
  Receipt Date: 20160106
  Transmission Date: 20160526
  Serious: Yes (Other)
  Sender: FDA-Public Use
  Company Number: PHJP2015JP023657

PATIENT
  Age: 37 Year
  Sex: Female

DRUGS (1)
  1. HYDROCHLOROTHIAZIDE,VALSARTAN [Suspect]
     Active Substance: HYDROCHLOROTHIAZIDE\VALSARTAN
     Indication: ESSENTIAL HYPERTENSION
     Dosage: UNK
     Route: 048

REACTIONS (5)
  - Premature labour [Unknown]
  - Maternal exposure during pregnancy [Unknown]
  - Polyhydramnios [Unknown]
  - Oligohydramnios [Recovered/Resolved]
  - Placental disorder [Unknown]
